FAERS Safety Report 11325837 (Version 1)
Quarter: 2015Q3

REPORT INFORMATION
  Report Type: Spontaneous
  Country: IT (occurrence: IT)
  Receive Date: 20150731
  Receipt Date: 20150731
  Transmission Date: 20151125
  Serious: Yes (Other)
  Sender: FDA-Public Use
  Company Number: IT-HOSPIRA-2561580

PATIENT
  Age: 65 Year
  Sex: Female

DRUGS (2)
  1. PACLITAXEL KABI [Suspect]
     Active Substance: PACLITAXEL
     Indication: BREAST CANCER
     Dates: start: 20130109
  2. PACLITAXEL. [Suspect]
     Active Substance: PACLITAXEL
     Indication: BREAST CANCER
     Dates: start: 20130109, end: 20130109

REACTIONS (2)
  - Abdominal pain upper [Recovered/Resolved]
  - Choking sensation [Recovered/Resolved]

NARRATIVE: CASE EVENT DATE: 20130109
